FAERS Safety Report 14080863 (Version 1)
Quarter: 2017Q4

REPORT INFORMATION
  Report Type: Spontaneous
  Country: US (occurrence: US)
  Receive Date: 20171012
  Receipt Date: 20171012
  Transmission Date: 20180321
  Serious: No
  Sender: FDA-Public Use
  Company Number: US-BAYER-2017-196251

PATIENT
  Age: 66 Year
  Sex: Female
  Weight: 75.96 kg

DRUGS (2)
  1. CRESTOR [Concomitant]
     Active Substance: ROSUVASTATIN CALCIUM
  2. ALEVE [Suspect]
     Active Substance: NAPROXEN SODIUM
     Indication: ARTHRITIS
     Dosage: 1 DF, UNK
     Route: 048
     Dates: start: 20171007

REACTIONS (4)
  - Product use in unapproved indication [Unknown]
  - Product leakage [None]
  - Circumstance or information capable of leading to medication error [Unknown]
  - Therapeutic response unexpected [Unknown]
